FAERS Safety Report 8302811-9 (Version None)
Quarter: 2012Q2

REPORT INFORMATION
  Report Type: 
  Country: None (occurrence: None)
  Receive Date: 20120420
  Receipt Date: 20120416
  Transmission Date: 20120825
  Serious: Yes (Other)
  Sender: FDA-Public Use
  Company Number: SE-AMGEN-SWESP2012023054

PATIENT
  Age: 64 Year
  Sex: Male

DRUGS (7)
  1. XGEVA [Suspect]
     Dosage: 120 MG, UNK
     Dates: start: 20120207, end: 20120207
  2. PANTOPRAZOLE SODIUM [Concomitant]
  3. BETAPRED [Concomitant]
  4. TORADOL [Concomitant]
  5. MORPHINE MIXTURE [Concomitant]
     Dosage: UNK UNK, PRN
  6. XGEVA [Suspect]
     Indication: PROSTATE CANCER METASTATIC
     Dosage: 120 MG, Q4WK
     Route: 058
     Dates: start: 20120110, end: 20120207
  7. PRIMPERAN TAB [Concomitant]

REACTIONS (5)
  - EYE DISORDER [None]
  - HEADACHE [None]
  - EMBOLISM [None]
  - DIPLOPIA [None]
  - DIZZINESS [None]
